FAERS Safety Report 18191542 (Version 3)
Quarter: 2020Q3

REPORT INFORMATION
  Report Type: Other
  Country: US (occurrence: US)
  Receive Date: 20200825
  Receipt Date: 20200924
  Transmission Date: 20201103
  Serious: Yes (Hospitalization, Other)
  Sender: FDA-Public Use
  Company Number: US-ROCHE-2663883

PATIENT
  Age: 42 Year
  Sex: Female
  Weight: 68.1 kg

DRUGS (18)
  1. NITROFURANTOIN MONOHYDRATE [Concomitant]
     Active Substance: NITROFURANTOIN MONOHYDRATE
     Indication: URINARY TRACT INFECTION
     Dosage: PRN ; FILLED ON 06/09/2020
  2. ARTANE [Concomitant]
     Active Substance: TRIHEXYPHENIDYL HYDROCHLORIDE
     Route: 048
  3. ESCITALOPRAM [Concomitant]
     Active Substance: ESCITALOPRAM OXALATE
     Dosage: FILLED ON 07/29/2020
     Route: 048
  4. MESALAMINE. [Concomitant]
     Active Substance: MESALAMINE
     Dosage: PRN ; FILLED ON 02/21/2020
     Route: 054
  5. NYSTOP [Concomitant]
     Active Substance: NYSTATIN
     Dosage: PRN ; FILLED ON 01/03/2019
     Route: 061
  6. DIAZEPAM. [Concomitant]
     Active Substance: DIAZEPAM
     Indication: TREMOR
     Dosage: PRESCRIBED ON 07/21/2020
     Route: 048
  7. TRAZODONE [Concomitant]
     Active Substance: TRAZODONE HYDROCHLORIDE
     Dosage: AT BEDTIME ; FILLED ON 01/13/2020
     Route: 048
  8. WELLBUTRIN [Concomitant]
     Active Substance: BUPROPION HYDROCHLORIDE
     Indication: DEPRESSION
     Route: 048
  9. OCREVUS [Suspect]
     Active Substance: OCRELIZUMAB
     Indication: SECONDARY PROGRESSIVE MULTIPLE SCLEROSIS
     Dosage: DATE OF TREATMENT: 06?DEC?2017
     Route: 042
     Dates: end: 2017
  10. OXYBUTYNIN. [Concomitant]
     Active Substance: OXYBUTYNIN CHLORIDE
     Route: 048
  11. LEXAPRO [Concomitant]
     Active Substance: ESCITALOPRAM OXALATE
     Indication: DEPRESSION
     Route: 048
  12. OCREVUS [Suspect]
     Active Substance: OCRELIZUMAB
     Indication: RELAPSING-REMITTING MULTIPLE SCLEROSIS
     Dosage: GIVE 300 MG IV DAY 1 AND DAY 15 AND GIVE 600 MG IV EVERY 6 MONTHS
     Route: 042
     Dates: start: 2017
  13. BACLOFEN. [Concomitant]
     Active Substance: BACLOFEN
     Indication: TREMOR
     Dosage: FILLED ON 07/02/2020
     Route: 048
  14. TRIHEXYPHENIDYL [Concomitant]
     Active Substance: TRIHEXYPHENIDYL
     Dosage: AS DIRECTED ; PRESCRIBED ON 07/31/2020
     Route: 048
  15. NITROFURANTOIN. [Concomitant]
     Active Substance: NITROFURANTOIN
     Route: 048
  16. BUPROPION. [Concomitant]
     Active Substance: BUPROPION
     Dosage: FILLED ON 06/27/2020
     Route: 048
  17. HYDROCORTISONE. [Concomitant]
     Active Substance: HYDROCORTISONE
     Dosage: PRN ; FILLED ON 02/11/2020
  18. OXYBUTYNIN CHLORIDE. [Concomitant]
     Active Substance: OXYBUTYNIN CHLORIDE
     Dosage: PRN ; FILLED ON 06/27/2020
     Route: 048

REACTIONS (16)
  - Dyslipidaemia [Unknown]
  - Hypoalbuminaemia [Unknown]
  - Hypoproteinaemia [Unknown]
  - Skin infection [Unknown]
  - Affective disorder [Unknown]
  - Chills [Unknown]
  - Hypoglycaemia [Unknown]
  - Staphylococcal infection [Unknown]
  - Hypocalcaemia [Unknown]
  - Abscess [Recovered/Resolved]
  - Pyrexia [Unknown]
  - Infected skin ulcer [Unknown]
  - Neurogenic bladder [Unknown]
  - Lymphopenia [Unknown]
  - Decubitus ulcer [Recovered/Resolved]
  - Blood alkaline phosphatase increased [Unknown]

NARRATIVE: CASE EVENT DATE: 2017
